FAERS Safety Report 4844001-8 (Version None)
Quarter: 2005Q4

REPORT INFORMATION
  Report Type: 
  Country: None (occurrence: None)
  Receive Date: 20051202
  Receipt Date: 20050726
  Transmission Date: 20060501
  Serious: No
  Sender: FDA-Public Use
  Company Number: US-GLAXOSMITHKLINE-A0567753A

PATIENT
  Age: 56 Year
  Sex: Female

DRUGS (3)
  1. AUGMENTIN XR [Suspect]
     Indication: OTITIS MEDIA
     Dosage: 2TAB TWICE PER DAY
     Route: 048
     Dates: start: 20050707, end: 20050713
  2. ATENOLOL [Concomitant]
  3. ESTRADIOL INJ [Concomitant]

REACTIONS (5)
  - CONSTIPATION [None]
  - DIARRHOEA [None]
  - FEELING ABNORMAL [None]
  - NAUSEA [None]
  - VOMITING [None]
